FAERS Safety Report 12142738 (Version 1)
Quarter: 2016Q1

REPORT INFORMATION
  Report Type: Spontaneous
  Country: JP (occurrence: JP)
  Receive Date: 20160303
  Receipt Date: 20160303
  Transmission Date: 20160526
  Serious: Yes (Hospitalization, Other)
  Sender: FDA-Public Use
  Company Number: JP-GILEAD-2016-0200275AA

PATIENT
  Sex: Female

DRUGS (2)
  1. HARVONI [Suspect]
     Active Substance: LEDIPASVIR\SOFOSBUVIR
     Indication: HEPATITIS
     Dosage: 1 DF, UNK
     Route: 048
     Dates: start: 20160114
  2. SENNOSIDE                          /00571901/ [Concomitant]
     Active Substance: SENNOSIDES A AND B
     Indication: CONSTIPATION
     Dosage: UNK
     Route: 048

REACTIONS (10)
  - Abdominal distension [Unknown]
  - Somnolence [Unknown]
  - Therapeutic response unexpected [Unknown]
  - Spinal pain [Unknown]
  - Paraesthesia [Unknown]
  - Gastroenteritis [Recovered/Resolved]
  - Loss of consciousness [Recovered/Resolved]
  - Fatigue [Unknown]
  - Chills [Unknown]
  - Abdominal pain [Recovered/Resolved]

NARRATIVE: CASE EVENT DATE: 20160114
